FAERS Safety Report 20380585 (Version 3)
Quarter: 2025Q2

REPORT INFORMATION
  Report Type: Spontaneous
  Country: US (occurrence: US)
  Receive Date: 20220127
  Receipt Date: 20250417
  Transmission Date: 20250716
  Serious: No
  Sender: BIOGEN
  Company Number: US-BIOGEN-2022BI01088782

PATIENT
  Sex: Female

DRUGS (1)
  1. TECFIDERA [Suspect]
     Active Substance: DIMETHYL FUMARATE
     Indication: Multiple sclerosis
     Route: 050

REACTIONS (5)
  - Therapy non-responder [Unknown]
  - Chromaturia [Recovered/Resolved]
  - Emotional disorder [Recovered/Resolved]
  - Negativism [Recovered/Resolved]
  - Flushing [Unknown]
